FAERS Safety Report 5203863-5 (Version None)
Quarter: 2007Q1

REPORT INFORMATION
  Report Type: 
  Country: None (occurrence: None)
  Receive Date: 20070105
  Receipt Date: 20070105
  Transmission Date: 20070707
  Serious: No
  Sender: FDA-Public Use
  Company Number: None

PATIENT
  Age: 77 Year
  Sex: Male
  Weight: 72.7 kg

DRUGS (14)
  1. CASPOFUNGIN [Suspect]
     Indication: FEBRILE NEUTROPENIA
     Dosage: SEE IMAGE
     Route: 042
     Dates: start: 20060714, end: 20060715
  2. CASPOFUNGIN [Suspect]
     Indication: FEBRILE NEUTROPENIA
     Dosage: SEE IMAGE
     Route: 042
     Dates: start: 20060712
  3. ACETAMINOPHEN [Concomitant]
  4. DIATRIZOATE MEGLUMINE [Concomitant]
  5. DIPHENHYDRAMINE HCL [Concomitant]
  6. COLACE [Concomitant]
  7. FILGRASTIM [Concomitant]
  8. MAALOX FAST BLOCKER [Concomitant]
  9. METRONIDAZOLE [Concomitant]
  10. VANCOMYCIN [Concomitant]
  11. M.V.I. [Concomitant]
  12. PIPERACILIN/TAZOBACTAM [Concomitant]
  13. POTASSIUM CHLORIDE [Concomitant]
  14. PROCHLORPERAZINE [Concomitant]

REACTIONS (5)
  - ASPERGILLOSIS [None]
  - RESPIRATORY DISTRESS [None]
  - SKIN DISCOLOURATION [None]
  - SKIN DISORDER [None]
  - SWOLLEN TONGUE [None]
